FAERS Safety Report 25244884 (Version 1)
Quarter: 2025Q2

REPORT INFORMATION
  Report Type: Spontaneous
  Country: US (occurrence: US)
  Receive Date: 20250428
  Receipt Date: 20250428
  Transmission Date: 20250716
  Serious: Yes (Other)
  Sender: PFIZER
  Company Number: US-PFIZER INC-PV202500048783

PATIENT
  Age: 49 Year
  Sex: Male

DRUGS (1)
  1. TESTOSTERONE CYPIONATE [Suspect]
     Active Substance: TESTOSTERONE CYPIONATE

REACTIONS (4)
  - Polycythaemia [Recovering/Resolving]
  - Retinal artery occlusion [Recovering/Resolving]
  - Blindness transient [Recovering/Resolving]
  - Blindness unilateral [Recovering/Resolving]
